FAERS Safety Report 22885372 (Version 7)
Quarter: 2023Q4

REPORT INFORMATION
  Report Type: Report from Study
  Country: US (occurrence: US)
  Receive Date: 20230831
  Receipt Date: 20231206
  Transmission Date: 20240110
  Serious: Yes (Other)
  Sender: FDA-Public Use
  Company Number: US-ABBVIE-5377176

PATIENT
  Sex: Male

DRUGS (7)
  1. IMBRUVICA [Suspect]
     Active Substance: IBRUTINIB
     Indication: Extranodal marginal zone B-cell lymphoma (BALT type)
     Route: 048
     Dates: start: 202307, end: 20230817
  2. IMBRUVICA [Suspect]
     Active Substance: IBRUTINIB
     Indication: Extranodal marginal zone B-cell lymphoma (BALT type)
     Dosage: TIME INTERVAL: 0.33333333 DAYS: LAST ADMIN DATE 2023
     Route: 048
     Dates: start: 202303
  3. IMBRUVICA [Suspect]
     Active Substance: IBRUTINIB
     Indication: Extranodal marginal zone B-cell lymphoma (BALT type)
     Route: 048
     Dates: start: 20230301, end: 202303
  4. IMBRUVICA [Suspect]
     Active Substance: IBRUTINIB
     Indication: Extranodal marginal zone B-cell lymphoma (BALT type)
     Route: 048
  5. IMBRUVICA [Suspect]
     Active Substance: IBRUTINIB
     Indication: Extranodal marginal zone B-cell lymphoma (BALT type)
     Route: 048
     Dates: start: 20230301, end: 20230816
  6. IMBRUVICA [Suspect]
     Active Substance: IBRUTINIB
     Indication: Extranodal marginal zone B-cell lymphoma (BALT type)
     Dosage: LAST ADMIN DATE 2023
     Route: 048
     Dates: start: 20230103
  7. KEFLEX [Suspect]
     Active Substance: CEPHALEXIN
     Indication: Product used for unknown indication
     Route: 065

REACTIONS (20)
  - Hernia [Recovering/Resolving]
  - Furuncle [Unknown]
  - Skin disorder [Not Recovered/Not Resolved]
  - Urticaria [Unknown]
  - Anaemia [Unknown]
  - White blood cell count abnormal [Unknown]
  - Loss of personal independence in daily activities [Unknown]
  - Stress at work [Unknown]
  - Respiratory tract infection [Unknown]
  - Localised infection [Unknown]
  - Drug hypersensitivity [Unknown]
  - Skin laceration [Unknown]
  - Wound haemorrhage [Unknown]
  - Insomnia [Unknown]
  - Impaired healing [Unknown]
  - Haemoptysis [Unknown]
  - Nasal congestion [Unknown]
  - Rhinorrhoea [Unknown]
  - Nasopharyngitis [Unknown]
  - Bone pain [Unknown]

NARRATIVE: CASE EVENT DATE: 20230101
